FAERS Safety Report 9292975 (Version 1)
Quarter: 2013Q2

REPORT INFORMATION
  Report Type: Spontaneous
  Country: US (occurrence: US)
  Receive Date: 20130516
  Receipt Date: 20130516
  Transmission Date: 20140414
  Serious: Yes (Other)
  Sender: FDA-Public Use
  Company Number: US-PFIZER INC-2013149612

PATIENT
  Age: 64 Year
  Sex: Female
  Weight: 47.2 kg

DRUGS (1)
  1. NORVASC [Suspect]
     Indication: HYPERTENSION
     Dosage: UNK

REACTIONS (3)
  - Transient ischaemic attack [Unknown]
  - Memory impairment [Unknown]
  - Blood cholesterol increased [Unknown]
